FAERS Safety Report 12360233 (Version 3)
Quarter: 2016Q3

REPORT INFORMATION
  Report Type: Spontaneous
  Country: GB (occurrence: GB)
  Receive Date: 20160512
  Receipt Date: 20160701
  Transmission Date: 20161109
  Serious: Yes (Death)
  Sender: FDA-Public Use
  Company Number: GB-BEH-2016062454

PATIENT
  Age: 83 Year
  Sex: Male
  Weight: 68 kg

DRUGS (3)
  1. BERIPLEX HS [Suspect]
     Active Substance: COAGULATION FACTOR IX HUMAN\COAGULATION FACTOR VII HUMAN\COAGULATION FACTOR X HUMAN\PROTEIN C\PROTEIN S HUMAN\PROTHROMBIN
     Indication: INTERNATIONAL NORMALISED RATIO INCREASED
     Dosage: 1000 IU, UNK
     Route: 042
     Dates: start: 20151026
  2. WARFARIN [Concomitant]
     Active Substance: WARFARIN
  3. BERIPLEX HS [Suspect]
     Active Substance: COAGULATION FACTOR IX HUMAN\COAGULATION FACTOR VII HUMAN\COAGULATION FACTOR X HUMAN\PROTEIN C\PROTEIN S HUMAN\PROTHROMBIN
     Indication: SUBDURAL HAEMORRHAGE
     Dosage: 1000 IU, UNK
     Route: 042
     Dates: start: 20151026

REACTIONS (1)
  - Cerebral haemorrhage [Fatal]

NARRATIVE: CASE EVENT DATE: 20151026
